FAERS Safety Report 4842914-4 (Version None)
Quarter: 2005Q4

REPORT INFORMATION
  Report Type: 
  Country: None (occurrence: None)
  Receive Date: 20051129
  Receipt Date: 20051116
  Transmission Date: 20060501
  Serious: Yes (Hospitalization, Other)
  Sender: FDA-Public Use
  Company Number: 2004218607DE

PATIENT
  Age: 65 Year
  Sex: Male

DRUGS (4)
  1. BEXTRA [Suspect]
     Indication: SPINAL OSTEOARTHRITIS
     Dosage: 20 MG ORAL
     Route: 048
     Dates: start: 20040603, end: 20040601
  2. EUGLUCON N (GLIBENCLAMIDE) [Concomitant]
  3. MEGLUCON (METFORMIN HYDROCHLORIDE) [Concomitant]
  4. LORZAAR (LOSARTAN POTASSIUM) [Concomitant]

REACTIONS (9)
  - ANXIETY [None]
  - BLOOD GLUCOSE INCREASED [None]
  - CARDIOVASCULAR INSUFFICIENCY [None]
  - DRUG HYPERSENSITIVITY [None]
  - DRUG INEFFECTIVE [None]
  - RESTLESSNESS [None]
  - SWELLING FACE [None]
  - TOXIC EPIDERMAL NECROLYSIS [None]
  - TREMOR [None]
